FAERS Safety Report 8152849-X (Version None)
Quarter: 2012Q1

REPORT INFORMATION
  Report Type: 
  Country: None (occurrence: None)
  Receive Date: 20120221
  Receipt Date: 20120214
  Transmission Date: 20120608
  Serious: Yes (Hospitalization)
  Sender: FDA-Public Use
  Company Number: US-BAYER-2012-016373

PATIENT
  Age: 19 Year
  Sex: Female

DRUGS (5)
  1. VITAMIN TAB [Concomitant]
     Indication: VITAMIN SUPPLEMENTATION
     Route: 048
  2. YAZ [Suspect]
     Indication: MENSTRUATION IRREGULAR
     Dosage: 1 DF, QD
     Route: 048
     Dates: start: 20070226
  3. YAZ [Suspect]
     Indication: DYSMENORRHOEA
     Dosage: 1 DF, QD
     Route: 048
     Dates: end: 20100217
  4. YAZ [Suspect]
     Indication: ACNE
  5. YASMIN [Suspect]

REACTIONS (7)
  - DYSPNOEA [None]
  - DIZZINESS [None]
  - VISUAL IMPAIRMENT [None]
  - HEADACHE [None]
  - PULMONARY EMBOLISM [None]
  - VOMITING [None]
  - NAUSEA [None]
